FAERS Safety Report 21743144 (Version 2)
Quarter: 2022Q4

REPORT INFORMATION
  Report Type: Spontaneous
  Country: NO (occurrence: NO)
  Receive Date: 20221217
  Receipt Date: 20221219
  Transmission Date: 20230113
  Serious: Yes (Other)
  Sender: FDA-Public Use
  Company Number: NO-ABBVIE-4240482

PATIENT
  Age: 43 Year
  Sex: Male

DRUGS (2)
  1. TESTOSTERONE [Suspect]
     Active Substance: TESTOSTERONE
     Indication: Attention deficit hyperactivity disorder
     Dosage: 50 MILLIGRAM
     Route: 065
  2. BENDROFLUMETHIAZIDE [Concomitant]
     Active Substance: BENDROFLUMETHIAZIDE
     Indication: Hypertension
     Route: 065

REACTIONS (5)
  - Hypopituitarism [Unknown]
  - Therapeutic product effective for unapproved indication [Unknown]
  - Hypospermia [Unknown]
  - Off label use [Unknown]
  - Therapeutic response unexpected [Unknown]
